FAERS Safety Report 9940072 (Version 1)
Quarter: 2014Q1

REPORT INFORMATION
  Report Type: Report from Study
  Country: US (occurrence: US)
  Receive Date: 20140303
  Receipt Date: 20140303
  Transmission Date: 20141002
  Serious: No
  Sender: FDA-Public Use
  Company Number: US-ABBVIE-13P-163-1036383-00

PATIENT
  Age: 65 Year
  Sex: Female
  Weight: 68.1 kg

DRUGS (5)
  1. HUMIRA [Suspect]
     Indication: PSORIATIC ARTHROPATHY
     Dates: start: 201212
  2. METHOTREXATE [Concomitant]
     Indication: PSORIATIC ARTHROPATHY
  3. MELOXICAM [Concomitant]
     Indication: PSORIATIC ARTHROPATHY
  4. ADVIL [Concomitant]
     Indication: PAIN
  5. ESTROGEN PATCH [Concomitant]
     Indication: HORMONE REPLACEMENT THERAPY

REACTIONS (1)
  - Joint swelling [Not Recovered/Not Resolved]
